FAERS Safety Report 15737672 (Version 1)
Quarter: 2018Q4

REPORT INFORMATION
  Report Type: Report from Study
  Country: None (occurrence: US)
  Receive Date: 20181219
  Receipt Date: 20181219
  Transmission Date: 20190205
  Serious: Yes (Other)
  Sender: FDA-Public Use
  Company Number: US-ABBVIE-17K-163-2180703-00

PATIENT
  Age: 24 Year
  Sex: Female

DRUGS (1)
  1. HUMIRA [Suspect]
     Active Substance: ADALIMUMAB
     Indication: CROHN^S DISEASE
     Route: 058
     Dates: start: 2011, end: 2017

REACTIONS (7)
  - Influenza [Unknown]
  - Gait inability [Unknown]
  - Joint swelling [Unknown]
  - Adverse event [Unknown]
  - Headache [Unknown]
  - Thyroid mass [Unknown]
  - Vocal cordectomy [Recovering/Resolving]

NARRATIVE: CASE EVENT DATE: 2017
